FAERS Safety Report 8756634 (Version 2)
Quarter: 2012Q4

REPORT INFORMATION
  Report Type: 
  Country: US (occurrence: US)
  Receive Date: 20120828
  Receipt Date: 20120910
  Transmission Date: 20130627
  Serious: No
  Sender: FDA-Public Use
  Company Number: US-TEVA-355869USA

PATIENT
  Sex: Female

DRUGS (2)
  1. PLAN B ONE-STEP [Suspect]
     Indication: POST COITAL CONTRACEPTION
     Dosage: 1.5 Milligram Daily;
     Route: 048
     Dates: start: 20120719, end: 20120719
  2. MULTIVITAMINS [Concomitant]
     Indication: MEDICAL DIET

REACTIONS (2)
  - Menstruation delayed [Recovered/Resolved]
  - Menorrhagia [Recovered/Resolved]
